FAERS Safety Report 6280889-4 (Version None)
Quarter: 2009Q3

REPORT INFORMATION
  Report Type: 
  Country: None (occurrence: None)
  Receive Date: 20090724
  Receipt Date: 20090316
  Transmission Date: 20100115
  Serious: No
  Sender: FDA-Public Use
  Company Number: A0773597A

PATIENT
  Age: 79 Year
  Sex: Female

DRUGS (7)
  1. AVANDIA [Suspect]
     Dosage: 2MG PER DAY
     Route: 048
     Dates: start: 20090220
  2. GLYBURIDE [Concomitant]
  3. ENALAPRIL MALEATE [Concomitant]
  4. METOPROLOL SUCCINATE [Concomitant]
  5. METHIMAZOLE [Concomitant]
  6. VYTORIN [Concomitant]
  7. MAXZIDE [Concomitant]

REACTIONS (1)
  - CHROMATURIA [None]
